FAERS Safety Report 5762095-2 (Version None)
Quarter: 2008Q2

REPORT INFORMATION
  Report Type: 
  Country: None (occurrence: None)
  Receive Date: 20080604
  Receipt Date: 20080528
  Transmission Date: 20081010
  Serious: Yes (Other)
  Sender: FDA-Public Use
  Company Number: CHPA2008US08903

PATIENT
  Age: 54 Year
  Sex: Female

DRUGS (1)
  1. EXCEDRIN MIGRAINE (NCH) (CAFFEINE CITRATE,ACETYLSALICYLIC ACID,ACETAMI [Suspect]
     Indication: MIGRAINE
     Dosage: 2 DF,ONCE/SINGLE,ORAL
     Route: 048
     Dates: start: 20080401

REACTIONS (3)
  - EXPIRED DRUG ADMINISTERED [None]
  - NERVOUSNESS [None]
  - TINNITUS [None]
